FAERS Safety Report 11105839 (Version 1)
Quarter: 2015Q2

REPORT INFORMATION
  Report Type: Spontaneous
  Country: US (occurrence: None)
  Receive Date: 20150508
  Receipt Date: 20150508
  Transmission Date: 20150821
  Serious: Yes (Hospitalization, Other)
  Sender: FDA-Public Use
  Company Number: None

PATIENT
  Age: 67 Year
  Sex: Female
  Weight: 72.2 kg

DRUGS (10)
  1. VITAMIN D [Concomitant]
     Active Substance: CHOLECALCIFEROL
  2. TYLENOL [Concomitant]
     Active Substance: ACETAMINOPHEN
  3. VALSARTAN. [Suspect]
     Active Substance: VALSARTAN
     Indication: HYPERTENSION
     Route: 048
     Dates: start: 20150414, end: 20150507
  4. NITROFURANTOIN. [Concomitant]
     Active Substance: NITROFURANTOIN
  5. FISH OIL [Concomitant]
     Active Substance: FISH OIL
  6. RALOXIFENE [Concomitant]
     Active Substance: RALOXIFENE
  7. CARVEDILOL. [Concomitant]
     Active Substance: CARVEDILOL
  8. VITAMIN E [Concomitant]
     Active Substance: .ALPHA.-TOCOPHEROL
  9. CALCIUM [Concomitant]
     Active Substance: CALCIUM
  10. CRESTOR [Concomitant]
     Active Substance: ROSUVASTATIN CALCIUM

REACTIONS (7)
  - Skull fracture [None]
  - Product quality issue [None]
  - Loss of consciousness [None]
  - Concussion [None]
  - Brain injury [None]
  - Fall [None]
  - Product substitution issue [None]

NARRATIVE: CASE EVENT DATE: 20150416
